FAERS Safety Report 5527632-1 (Version None)
Quarter: 2007Q4

REPORT INFORMATION
  Report Type: 
  Country: None (occurrence: None)
  Receive Date: 20071126
  Receipt Date: 20071126
  Transmission Date: 20080405
  Serious: Yes (Other)
  Sender: FDA-Public Use
  Company Number: None

PATIENT
  Sex: Male
  Weight: 106.2324 kg

DRUGS (1)
  1. METOPROLOL SUCCINATE [Suspect]
     Indication: ARRHYTHMIA
     Dosage: 1QAM, 1/2 QHS 50MGINAM, 25MG QHS PO
     Route: 048
     Dates: start: 20071010, end: 20071112

REACTIONS (4)
  - HEART RATE IRREGULAR [None]
  - PALPITATIONS [None]
  - THERAPEUTIC RESPONSE UNEXPECTED WITH DRUG SUBSTITUTION [None]
  - UNEVALUABLE EVENT [None]
